FAERS Safety Report 12469687 (Version 3)
Quarter: 2017Q4

REPORT INFORMATION
  Report Type: Spontaneous
  Country: US (occurrence: US)
  Receive Date: 20160615
  Receipt Date: 20171218
  Transmission Date: 20180320
  Serious: Yes (Other)
  Sender: FDA-Public Use
  Company Number: US-FRI-1000083963

PATIENT
  Age: 82 Year
  Sex: Female
  Weight: 56.24 kg

DRUGS (10)
  1. CALCIUM CARBONATE. [Concomitant]
     Active Substance: CALCIUM CARBONATE
     Dosage: UNK
     Route: 048
  2. REFRESH TEARS [Concomitant]
     Active Substance: CARBOXYMETHYLCELLULOSE SODIUM
     Indication: DRY EYE
     Dosage: UNK
     Route: 047
  3. SELENIUM [Concomitant]
     Active Substance: SELENIUM
     Dosage: 100 MG, QD
     Route: 048
  4. RUTIN [Concomitant]
     Active Substance: RUTIN
     Dosage: UNK
     Route: 048
  5. LEVOTHYROXINE. [Concomitant]
     Active Substance: LEVOTHYROXINE
     Indication: THYROID DISORDER
     Dosage: 88 ?G, QD
     Route: 048
  6. MULTIVITAMIN [Concomitant]
     Active Substance: VITAMINS
     Indication: NUTRITIONAL SUPPLEMENTATION
     Dosage: UNK, QD
     Route: 048
  7. BYSTOLIC [Suspect]
     Active Substance: NEBIVOLOL HYDROCHLORIDE
     Indication: HYPERTENSION
     Dosage: 5 MG, QD
     Route: 048
     Dates: start: 201506
  8. PRESERVISION [Concomitant]
     Active Substance: MINERALS\VITAMINS
     Indication: VITAMIN SUPPLEMENTATION
     Dosage: UNK
  9. OMEPRAZOLE. [Concomitant]
     Active Substance: OMEPRAZOLE
     Indication: GASTROINTESTINAL DISORDER
     Dosage: 20 MG, UNK
     Route: 048
  10. CALCIUM [Concomitant]
     Active Substance: CALCIUM
     Dosage: UNK
     Route: 045

REACTIONS (11)
  - Arthralgia [Not Recovered/Not Resolved]
  - Breast cancer [Not Recovered/Not Resolved]
  - Unevaluable event [Unknown]
  - Blood pressure increased [Unknown]
  - Musculoskeletal pain [Not Recovered/Not Resolved]
  - Hypoaesthesia [Not Recovered/Not Resolved]
  - Nausea [Unknown]
  - Pneumonia [Not Recovered/Not Resolved]
  - Abdominal distension [Unknown]
  - Pain [Unknown]
  - Joint stiffness [Not Recovered/Not Resolved]

NARRATIVE: CASE EVENT DATE: 2016
